FAERS Safety Report 8543880 (Version 5)
Quarter: 2013Q2

REPORT INFORMATION
  Report Type: Spontaneous
  Country: US (occurrence: US)
  Receive Date: 20120503
  Receipt Date: 20130627
  Transmission Date: 20140414
  Serious: Yes (Other)
  Sender: FDA-Public Use
  Company Number: PHEH2012US008892

PATIENT
  Age: 73 Year
  Sex: Female
  Weight: 118 kg

DRUGS (6)
  1. RECLAST [Suspect]
     Indication: OSTEOPOROSIS
     Dosage: UNK
     Route: 042
     Dates: start: 20090210
  2. RECLAST [Suspect]
     Dosage: UNK
     Route: 042
     Dates: start: 20100223
  3. RECLAST [Suspect]
     Dosage: UNK
     Route: 042
     Dates: start: 20110224
  4. LISINOPRIL [Concomitant]
     Indication: HYPERTENSION
     Dosage: 20 MG, QD
     Route: 048
  5. SYNTHROID [Concomitant]
     Indication: HYPOTHYROIDISM
     Dosage: 50 MG, QD
     Route: 048
  6. BONIVA [Concomitant]
     Dosage: UNK
     Dates: start: 2010

REACTIONS (5)
  - Osteonecrosis of jaw [Recovered/Resolved]
  - Exostosis of jaw [Unknown]
  - Exposed bone in jaw [Recovered/Resolved with Sequelae]
  - Pain in jaw [Unknown]
  - Purulent discharge [Unknown]
